FAERS Safety Report 20595810 (Version 1)
Quarter: 2022Q1

REPORT INFORMATION
  Report Type: Spontaneous
  Country: US (occurrence: None)
  Receive Date: 20220315
  Receipt Date: 20220315
  Transmission Date: 20220423
  Serious: Yes (Hospitalization, Disabling)
  Sender: FDA-Public Use
  Company Number: None

PATIENT
  Age: 32 Year
  Sex: Female
  Weight: 81.45 kg

DRUGS (6)
  1. CITALOPRAM [Suspect]
     Active Substance: CITALOPRAM HYDROBROMIDE
     Indication: Depression
     Dosage: OTHER QUANTITY : 1 TABLET(S);?FREQUENCY : DAILY;?
     Route: 048
     Dates: start: 20140529, end: 20140614
  2. ALBUTEROL [Concomitant]
     Active Substance: ALBUTEROL
  3. FLOVENT [Concomitant]
     Active Substance: FLUTICASONE PROPIONATE
  4. MONTELUKAST SODIUM (SINGULAIR) [Concomitant]
  5. CELEXA [Concomitant]
  6. DYSTONIA [Concomitant]

REACTIONS (5)
  - Dystonia [None]
  - Muscle rigidity [None]
  - Blepharospasm [None]
  - Muscle spasms [None]
  - Dyspraxia [None]

NARRATIVE: CASE EVENT DATE: 20140614
